FAERS Safety Report 4745037-8 (Version None)
Quarter: 2005Q3

REPORT INFORMATION
  Report Type: 
  Country: None (occurrence: None)
  Receive Date: 20050811
  Receipt Date: 20050801
  Transmission Date: 20060218
  Serious: Yes (Other)
  Sender: FDA-Public Use
  Company Number: 2005109585

PATIENT
  Age: 73 Year
  Sex: Male
  Weight: 99.7913 kg

DRUGS (4)
  1. NORVASC [Suspect]
     Indication: BLOOD PRESSURE
     Dosage: 5 MG (5 MG, 1 IN 1 D), ORAL
     Route: 048
  2. LIPITOR [Suspect]
     Indication: BLOOD CHOLESTEROL
     Dosage: 10 MG, 1 IN 1 D, ORAL
     Route: 048
  3. ATENOLOL [Suspect]
     Indication: BLOOD PRESSURE
     Dosage: 100 MG (100 MG, 1 IN 1 D), ORAL
     Route: 048
  4. ASPIRIN [Concomitant]

REACTIONS (13)
  - ARTERIAL OCCLUSIVE DISEASE [None]
  - ASTHENOPIA [None]
  - BLOOD PRESSURE INCREASED [None]
  - BODY HEIGHT DECREASED [None]
  - CATARACT [None]
  - CHEST PAIN [None]
  - DIZZINESS [None]
  - ERECTILE DYSFUNCTION [None]
  - FEELING ABNORMAL [None]
  - LIBIDO DECREASED [None]
  - PROSTATIC SPECIFIC ANTIGEN INCREASED [None]
  - SLEEP DISORDER [None]
  - VISUAL DISTURBANCE [None]
